FAERS Safety Report 13664088 (Version 1)
Quarter: 2017Q2

REPORT INFORMATION
  Report Type: Spontaneous
  Country: IN (occurrence: IN)
  Receive Date: 20170619
  Receipt Date: 20170619
  Transmission Date: 20170830
  Serious: Yes (Other)
  Sender: FDA-Public Use
  Company Number: IN-VALIDUS PHARMACEUTICALS LLC-IN-2017VAL000914

PATIENT
  Age: 21 Year
  Sex: Female

DRUGS (7)
  1. DIGOXIN. [Suspect]
     Active Substance: DIGOXIN
     Indication: VENTRICULAR SEPTAL DEFECT
     Dosage: 0.25 MG, QD
     Route: 065
  2. LIDOCAINE. [Suspect]
     Active Substance: LIDOCAINE
     Indication: ANAESTHESIA
     Dosage: 5 ML, UNK
     Route: 065
  3. FUROSEMIDE. [Suspect]
     Active Substance: FUROSEMIDE
     Indication: VENTRICULAR SEPTAL DEFECT
     Dosage: 20 MG, BID
     Route: 065
  4. SILDENAFIL CITRATE. [Suspect]
     Active Substance: SILDENAFIL CITRATE
     Indication: VENTRICULAR SEPTAL DEFECT
     Dosage: 25 MG, EVERY 8 HOURS
     Route: 065
  5. DOBUTAMINE [Suspect]
     Active Substance: DOBUTAMINE\DOBUTAMINE HYDROCHLORIDE
     Indication: MEAN ARTERIAL PRESSURE DECREASED
     Dosage: UNK
     Route: 065
  6. DOBUTAMINE [Suspect]
     Active Substance: DOBUTAMINE\DOBUTAMINE HYDROCHLORIDE
     Dosage: UNK
     Route: 065
  7. NIFEDIPINE. [Suspect]
     Active Substance: NIFEDIPINE
     Indication: VENTRICULAR SEPTAL DEFECT
     Dosage: 10 MG, BID
     Route: 065

REACTIONS (4)
  - Stroke volume decreased [Recovering/Resolving]
  - Exposure during pregnancy [Unknown]
  - Mean arterial pressure decreased [Recovering/Resolving]
  - Vascular resistance systemic decreased [Recovering/Resolving]
